FAERS Safety Report 4752897-3 (Version None)
Quarter: 2005Q3

REPORT INFORMATION
  Report Type: 
  Country: None (occurrence: None)
  Receive Date: 20050714
  Receipt Date: 20050303
  Transmission Date: 20060218
  Serious: Yes (Hospitalization)
  Sender: FDA-Public Use
  Company Number: 200511732US

PATIENT
  Age: 64 Year
  Sex: Female

DRUGS (3)
  1. TAXOTERE [Suspect]
     Indication: BREAST CANCER
     Dosage: 50 MG/M**2 ONCE IV
     Route: 042
     Dates: start: 20041209, end: 20041209
  2. TAXOTERE [Suspect]
     Indication: BREAST CANCER
     Dosage: 20 MG/M**2 QW IV
     Route: 042
  3. ANTIEMETIC [Concomitant]

REACTIONS (1)
  - PLEURAL EFFUSION [None]
